FAERS Safety Report 12377477 (Version 1)
Quarter: 2016Q2

REPORT INFORMATION
  Report Type: Spontaneous
  Country: US (occurrence: US)
  Receive Date: 20160517
  Receipt Date: 20160517
  Transmission Date: 20160815
  Serious: No
  Sender: FDA-Public Use
  Company Number: US-JNJFOC-20160401776

PATIENT
  Age: 35 Year
  Sex: Female
  Weight: 53.52 kg

DRUGS (2)
  1. MOTRIN INFANTS [Suspect]
     Active Substance: IBUPROFEN
     Route: 048
  2. MOTRIN INFANTS [Suspect]
     Active Substance: IBUPROFEN
     Indication: PRODUCT USED FOR UNKNOWN INDICATION
     Dosage: A DROP SPILLED ON FINGER
     Route: 048

REACTIONS (6)
  - Throat irritation [Recovered/Resolved]
  - Off label use [Recovered/Resolved]
  - Dysgeusia [Recovered/Resolved]
  - Glossodynia [Recovered/Resolved]
  - Product use issue [Recovered/Resolved]
  - Product taste abnormal [Recovered/Resolved]
